FAERS Safety Report 5033346-7 (Version None)
Quarter: 2006Q2

REPORT INFORMATION
  Report Type: 
  Country: None (occurrence: None)
  Receive Date: 20060623
  Receipt Date: 20060518
  Transmission Date: 20061013
  Serious: Yes (Death)
  Sender: FDA-Public Use
  Company Number: BR-JNJFOC-20060604702

PATIENT
  Age: 19 Year
  Sex: Female

DRUGS (3)
  1. HALDOL [Suspect]
     Indication: PSYCHOTIC DISORDER
     Route: 048
  2. CLONAZEPAM [Concomitant]
  3. PHENYTOIN [Concomitant]

REACTIONS (4)
  - CONVULSION [None]
  - DEATH [None]
  - GENERAL PHYSICAL HEALTH DETERIORATION [None]
  - NEUROLEPTIC MALIGNANT SYNDROME [None]
